FAERS Safety Report 10755090 (Version 1)
Quarter: 2015Q1

REPORT INFORMATION
  Report Type: Spontaneous
  Country: US (occurrence: None)
  Receive Date: 20150123
  Receipt Date: 20150123
  Transmission Date: 20150721
  Serious: Yes (Other)
  Sender: FDA-Public Use
  Company Number: TAP2008Q00826

PATIENT
  Sex: Female

DRUGS (1)
  1. PREVACID SOLUTAB [Suspect]
     Active Substance: LANSOPRAZOLE
     Indication: PRODUCT USED FOR UNKNOWN INDICATION
     Route: 048
     Dates: start: 200808, end: 200808

REACTIONS (6)
  - Pruritus [None]
  - Syncope [None]
  - Swollen tongue [None]
  - Hypotension [None]
  - Dizziness [None]
  - Lip swelling [None]

NARRATIVE: CASE EVENT DATE: 200808
